FAERS Safety Report 9434775 (Version 2)
Quarter: 2013Q3

REPORT INFORMATION
  Report Type: Spontaneous
  Country: US (occurrence: US)
  Receive Date: 20130801
  Receipt Date: 20130816
  Transmission Date: 20140515
  Serious: Yes (Hospitalization, Other)
  Sender: FDA-Public Use
  Company Number: US-PFIZER INC-2013224035

PATIENT
  Age: 66 Year
  Sex: Male
  Weight: 93.42 kg

DRUGS (8)
  1. LYRICA [Suspect]
     Indication: DIABETIC NEUROPATHY
     Dosage: 50 MG/DAY
     Route: 048
     Dates: start: 2004
  2. LYRICA [Suspect]
     Dosage: 50 MG, 3X/DAY
     Route: 048
  3. LYRICA [Suspect]
     Dosage: 100 MG, 3X/DAY
     Route: 048
  4. LYRICA [Suspect]
     Dosage: 300 MG, 2X/DAY
     Route: 048
  5. DILANTIN-125 [Suspect]
     Indication: CONVULSION
     Dosage: 100 MG, 3X/DAY
     Dates: start: 2013, end: 2013
  6. VALIUM [Suspect]
     Indication: SUICIDAL IDEATION
     Dosage: 5 MG, 3X/DAY
     Dates: start: 2013, end: 2013
  7. METFORMIN [Concomitant]
     Indication: TYPE 2 DIABETES MELLITUS
     Dosage: 500MG ONE TABLET IN MORNING AND TWO 500MG TABLETS IN EVENING, 2X/DAY
     Route: 048
  8. GLIPIZIDE [Concomitant]
     Indication: TYPE 2 DIABETES MELLITUS
     Dosage: 20 MG/DAY
     Route: 048

REACTIONS (9)
  - Convulsion [Not Recovered/Not Resolved]
  - Epilepsy [Unknown]
  - Suicidal ideation [Not Recovered/Not Resolved]
  - Gait disturbance [Unknown]
  - Visual impairment [Not Recovered/Not Resolved]
  - Dizziness [Not Recovered/Not Resolved]
  - Somnolence [Not Recovered/Not Resolved]
  - Drug ineffective [Unknown]
  - Drug intolerance [Unknown]
